FAERS Safety Report 16871789 (Version 2)
Quarter: 2019Q4

REPORT INFORMATION
  Report Type: Report from Study
  Country: KR (occurrence: KR)
  Receive Date: 20191001
  Receipt Date: 20191016
  Transmission Date: 20200122
  Serious: Yes (Life-Threatening, Hospitalization, Other)
  Sender: FDA-Public Use
  Company Number: KR-CELLTRION INC.-2019KR025296

PATIENT

DRUGS (5)
  1. CYTARABINE. [Suspect]
     Active Substance: CYTARABINE
     Dosage: 3000 MG/M2 + 5%DW 200 ML IVF OVER 2 HRS EVERY 4 WEEKS
  2. METHOTREXATE. [Suspect]
     Active Substance: METHOTREXATE
     Dosage: 6510 MG QD D2 (500 MG/M2 + 5%DW 200 ML IV OVER 15 MINUTES AND 3000 MG/M2 + 5%DW 500 ML IVF OVER 3 HR
  3. CRAVIT [Concomitant]
     Active Substance: LEVOFLOXACIN
     Indication: INFECTION
     Dosage: 250 MG, ONCE
     Route: 048
     Dates: start: 20190910, end: 20190916
  4. PEPTAZOLE [Concomitant]
     Indication: ULCER
     Dosage: 40 MG, ONCE
     Route: 042
     Dates: start: 20190903, end: 20190904
  5. RITUXIMAB (UNKNOWN) [Suspect]
     Active Substance: RITUXIMAB
     Indication: LYMPHOMA
     Dosage: 930 MG QD D1 (500 MG/M2 + 5%DW 500 ML IVF, BEGIN WITH 50 MG/HR (INCREASE BY 50 MG/HR PER 30 MIN UNTI
     Route: 042
     Dates: start: 20190724, end: 20190807

REACTIONS (3)
  - Upper gastrointestinal haemorrhage [Recovered/Resolved]
  - Overdose [Unknown]
  - Pneumonia [Recovered/Resolved]

NARRATIVE: CASE EVENT DATE: 20190817
